FAERS Safety Report 6644991-7 (Version None)
Quarter: 2010Q1

REPORT INFORMATION
  Report Type: 
  Country: None (occurrence: None)
  Receive Date: 20100322
  Receipt Date: 20100311
  Transmission Date: 20100710
  Serious: Yes (Hospitalization)
  Sender: FDA-Public Use
  Company Number: PHHY2010BE13387

PATIENT
  Sex: Female

DRUGS (7)
  1. RASILEZ [Suspect]
     Indication: HYPERTENSION
     Dosage: 150 MG DAILY
     Dates: start: 20090319, end: 20090401
  2. RASILEZ [Suspect]
     Dosage: 300 MG
     Dates: start: 20090401, end: 20100101
  3. INSULIN [Concomitant]
     Dosage: UNK
  4. METFORMIN HYDROCHLORIDE [Concomitant]
     Dosage: UNK
  5. MOXONIDINE [Concomitant]
     Dosage: UNK
  6. CORUNO [Concomitant]
     Dosage: UNK
  7. PERSANTINE [Concomitant]
     Dosage: UNK

REACTIONS (1)
  - RENAL IMPAIRMENT [None]
